FAERS Safety Report 24024308 (Version 2)
Quarter: 2024Q2

REPORT INFORMATION
  Report Type: Report from Study
  Country: RO (occurrence: RO)
  Receive Date: 20240627
  Receipt Date: 20240628
  Transmission Date: 20240717
  Serious: No
  Sender: FDA-Public Use
  Company Number: RO-ROCHE-3496331

PATIENT
  Age: 60 Year
  Sex: Female
  Weight: 70.0 kg

DRUGS (1)
  1. PHESGO [Suspect]
     Active Substance: HYALURONIDASE-ZZXF\PERTUZUMAB\TRASTUZUMAB
     Indication: Product used for unknown indication
     Dosage: 600MG/600MG
     Route: 042

REACTIONS (3)
  - Illness [Unknown]
  - Platelet count decreased [Unknown]
  - Nasopharyngitis [Unknown]
